FAERS Safety Report 6641269-2 (Version None)
Quarter: 2010Q1

REPORT INFORMATION
  Report Type: 
  Country: None (occurrence: None)
  Receive Date: 20100318
  Receipt Date: 20100310
  Transmission Date: 20100710
  Serious: Yes (Hospitalization)
  Sender: FDA-Public Use
  Company Number: FR-ALLERGAN-1002033US

PATIENT
  Age: 61 Year
  Sex: Male

DRUGS (5)
  1. TROSPIUM CHLORIDE [Suspect]
     Indication: POLLAKIURIA
     Dosage: 20 MG, BID
     Route: 048
     Dates: start: 20091126, end: 20091201
  2. FLECAINIDE [Concomitant]
  3. ALLOPURINOL [Concomitant]
  4. FENOFIBRATE [Concomitant]
  5. KARDEGIC [Concomitant]

REACTIONS (1)
  - CHEST PAIN [None]
